FAERS Safety Report 9041600 (Version 1)
Quarter: 2013Q1

REPORT INFORMATION
  Report Type: Report from Study
  Country: US (occurrence: US)
  Receive Date: 20130129
  Receipt Date: 20130129
  Transmission Date: 20140127
  Serious: No
  Sender: FDA-Public Use
  Company Number: US-ABBOTT-12P-163-0902680-00

PATIENT
  Age: 78 Year
  Sex: Male
  Weight: 113.5 kg

DRUGS (6)
  1. HUMIRA 40 MG/0.8 ML PEN [Suspect]
     Indication: PSORIASIS
     Route: 058
     Dates: start: 20120130
  2. HUMIRA 40 MG/0.8 ML PEN [Suspect]
     Route: 058
     Dates: start: 20120130, end: 20120130
  3. TENORMIN [Concomitant]
     Indication: HYPERTENSION
     Dosage: DAILY
  4. ZOLOFT [Concomitant]
     Indication: ANXIETY
     Dosage: DAILY
  5. METOPROLOL [Concomitant]
     Indication: HYPERTENSION
     Dosage: DAILY
  6. AMLODIPINE [Concomitant]
     Indication: PRODUCT USED FOR UNKNOWN INDICATION
     Dosage: DAILY

REACTIONS (3)
  - Abdominal pain upper [Not Recovered/Not Resolved]
  - Psoriasis [Not Recovered/Not Resolved]
  - Chest pain [Not Recovered/Not Resolved]
